FAERS Safety Report 5362918-5 (Version None)
Quarter: 2007Q2

REPORT INFORMATION
  Report Type: 
  Country: None (occurrence: None)
  Receive Date: 20070615
  Receipt Date: 20070605
  Transmission Date: 20071010
  Serious: Yes (Hospitalization, Other)
  Sender: FDA-Public Use
  Company Number: 2007US000247

PATIENT
  Age: 52 Year
  Sex: Female

DRUGS (2)
  1. PROGRAF [Suspect]
     Indication: RENAL TRANSPLANT
     Dosage: BID, ORAL
     Route: 048
     Dates: start: 20050813, end: 20070126
  2. CELLCEPT [Concomitant]

REACTIONS (9)
  - AORTIC VALVE DISEASE [None]
  - CARDIAC VALVE VEGETATION [None]
  - CORONARY ARTERY STENOSIS [None]
  - DIZZINESS [None]
  - DRUG TOXICITY [None]
  - EAR PAIN [None]
  - ENDOCARDITIS [None]
  - HEADACHE [None]
  - LEUKOENCEPHALOPATHY [None]
